FAERS Safety Report 5711824-2 (Version None)
Quarter: 2008Q2

REPORT INFORMATION
  Report Type: 
  Country: None (occurrence: None)
  Receive Date: 20080416
  Receipt Date: 20080331
  Transmission Date: 20081010
  Serious: Yes (Death, Disabling)
  Sender: FDA-Public Use
  Company Number: 2008JP001653

PATIENT
  Sex: Female

DRUGS (25)
  1. FUNGUARD(MICAFUNGIN) INJECTION [Suspect]
     Indication: BRONCHOPULMONARY ASPERGILLOSIS
     Dosage: 300 MG, /D, IV DRIP; 150 MG, /D, IV DRIP
     Route: 041
     Dates: start: 20070713, end: 20071011
  2. FUNGUARD(MICAFUNGIN) INJECTION [Suspect]
     Indication: BRONCHOPULMONARY ASPERGILLOSIS
     Dosage: 300 MG, /D, IV DRIP; 150 MG, /D, IV DRIP
     Route: 041
     Dates: start: 20071012, end: 20071111
  3. PRIMPERAN TAB [Concomitant]
  4. TARGOCID [Concomitant]
  5. FAMOTIDINE [Concomitant]
  6. VANCOMYCIN HYDROCHLORIDE [Concomitant]
  7. MEROPEN (MEROPENEM) [Concomitant]
  8. AMBISOME [Concomitant]
  9. ACYCLOVIR [Concomitant]
  10. MAXIPIME [Concomitant]
  11. FIRSTCIN (CEFOZOPRAN HYDROCHLORIDE) [Concomitant]
  12. CYCLOSPORINE [Concomitant]
  13. MIDAZOLAM HCL [Concomitant]
  14. LEPETAN (BUPRENORPHINE HYDROCHLORIDE) [Concomitant]
  15. PANTOL (PANTHENOL) [Concomitant]
  16. ANTHROBIN P (ANTITHROMBIN III) [Concomitant]
  17. ELASPOL (SIVELESTAT) [Concomitant]
  18. FRAGMIN [Concomitant]
  19. DIPRIVAN [Concomitant]
  20. OMEPRAL [Concomitant]
  21. MORPHINE [Concomitant]
  22. LASIX [Concomitant]
  23. SOLDACTONE (POTASSIUM CANRENOATE) [Concomitant]
  24. MANNITOL [Concomitant]
  25. HUMULIN R [Concomitant]

REACTIONS (3)
  - ACUTE BIPHENOTYPIC LEUKAEMIA [None]
  - DISEASE PROGRESSION [None]
  - RENAL IMPAIRMENT [None]
